FAERS Safety Report 25058876 (Version 1)
Quarter: 2025Q1

REPORT INFORMATION
  Report Type: Spontaneous
  Country: PL (occurrence: PL)
  Receive Date: 20250310
  Receipt Date: 20250310
  Transmission Date: 20250409
  Serious: Yes (Hospitalization)
  Sender: MYLAN
  Company Number: PL-MYLANLABS-2025M1018410

PATIENT
  Age: 63 Year
  Sex: Male

DRUGS (6)
  1. MYCOPHENOLATE MOFETIL [Suspect]
     Active Substance: MYCOPHENOLATE MOFETIL
     Indication: Systemic scleroderma
  2. MYCOPHENOLATE MOFETIL [Suspect]
     Active Substance: MYCOPHENOLATE MOFETIL
     Indication: Sarcoidosis
  3. METHOTREXATE [Suspect]
     Active Substance: METHOTREXATE
     Indication: Systemic scleroderma
  4. METHOTREXATE [Suspect]
     Active Substance: METHOTREXATE
     Indication: Sarcoidosis
  5. NINTEDANIB [Suspect]
     Active Substance: NINTEDANIB
     Indication: Systemic scleroderma
  6. NINTEDANIB [Suspect]
     Active Substance: NINTEDANIB
     Indication: Sarcoidosis

REACTIONS (1)
  - Drug ineffective [Unknown]
